FAERS Safety Report 11836342 (Version 1)
Quarter: 2015Q4

REPORT INFORMATION
  Report Type: Spontaneous
  Country: US (occurrence: None)
  Receive Date: 20151214
  Receipt Date: 20151214
  Transmission Date: 20160305
  Serious: Yes (Other)
  Sender: FDA-Public Use
  Company Number: None

PATIENT
  Age: 98 Year
  Sex: Female
  Weight: 58.97 kg

DRUGS (20)
  1. PROSIGHT (EYE VITAMINS) [Concomitant]
  2. ULTRAM [Concomitant]
     Active Substance: TRAMADOL HYDROCHLORIDE
  3. MILK OF MAGNESIA [Concomitant]
     Active Substance: MAGNESIUM HYDROXIDE
  4. NAMENDA [Concomitant]
     Active Substance: MEMANTINE HYDROCHLORIDE
  5. MIRALAX [Concomitant]
     Active Substance: POLYETHYLENE GLYCOL 3350
  6. PRILOSEC [Concomitant]
     Active Substance: OMEPRAZOLE MAGNESIUM
  7. TYLENOL [Concomitant]
     Active Substance: ACETAMINOPHEN
  8. ARTIFICIAL TEARS [Concomitant]
     Active Substance: GLYCERIN\HYPROMELLOSES\POLYETHYLENE GLYCOL 400
  9. ISOSORBIDE. [Concomitant]
     Active Substance: ISOSORBIDE
  10. KEFLEX [Concomitant]
     Active Substance: CEPHALEXIN
  11. SYNTHROID [Concomitant]
     Active Substance: LEVOTHYROXINE SODIUM
  12. XANAX [Concomitant]
     Active Substance: ALPRAZOLAM
  13. AVASTIN [Suspect]
     Active Substance: BEVACIZUMAB
     Indication: MACULAR DEGENERATION
     Dosage: 1.25 MG/0.05 ML EVERY 6 WEEKS INTRAVITREALLY
     Dates: start: 20120321, end: 20150930
  14. SENOKOT [Concomitant]
     Active Substance: SENNOSIDES
  15. LISINOPRIL. [Concomitant]
     Active Substance: LISINOPRIL
  16. CALCIUM [Concomitant]
     Active Substance: CALCIUM
  17. LUMIGAN EYE DROPS [Concomitant]
  18. ASPIRIN. [Concomitant]
     Active Substance: ASPIRIN
  19. ZOLOFT [Concomitant]
     Active Substance: SERTRALINE HYDROCHLORIDE
  20. ACIDOPHILUS [Concomitant]
     Active Substance: LACTOBACILLUS ACIDOPHILUS

REACTIONS (2)
  - Vitreous floaters [None]
  - Eye disorder [None]

NARRATIVE: CASE EVENT DATE: 20151111
